FAERS Safety Report 10409082 (Version 1)
Quarter: 2014Q3

REPORT INFORMATION
  Report Type: Spontaneous
  Country: GB (occurrence: None)
  Receive Date: 20140822
  Receipt Date: 20140822
  Transmission Date: 20150326
  Serious: Yes (Hospitalization)
  Sender: FDA-Public Use
  Company Number: AUR-APL-2014-08878

PATIENT
  Age: 82 Year
  Sex: Male

DRUGS (11)
  1. GABAPENTIN 300MG (GABAPENTIN) UNKNOWN, 300MG [Suspect]
     Active Substance: GABAPENTIN
     Indication: NEURALGIA
     Route: 048
  2. DIGOXIN (DIGOXIN) [Concomitant]
     Active Substance: DIGOXIN
  3. BISOPROLOL (BISOPROLOL) [Concomitant]
     Active Substance: BISOPROLOL
  4. PARACETAMAIL (PARACETAMOL) [Concomitant]
  5. WARFARIN (WARFARIN) [Concomitant]
     Active Substance: WARFARIN
  6. SIMVASTATIN (SIMVASTATIN) [Concomitant]
     Active Substance: SIMVASTATIN
  7. FUROSEMIDE (FUROSEMIDE) [Concomitant]
     Active Substance: FUROSEMIDE
  8. RAMIPRIL (RAMIPRIL) [Concomitant]
     Active Substance: RAMIPRIL
  9. FERROUS FUMARATE (FERROUS FUMARATE) [Concomitant]
  10. LANSOPRAZOLE (LANSOPRAZOLE) [Concomitant]
     Active Substance: LANSOPRAZOLE
  11. TAMSULOSIN (TAMSULOSIN) [Concomitant]
     Active Substance: TAMSULOSIN

REACTIONS (3)
  - Visual impairment [None]
  - Hallucination [None]
  - Somnolence [None]

NARRATIVE: CASE EVENT DATE: 20140804
